FAERS Safety Report 16692061 (Version 1)
Quarter: 2019Q3

REPORT INFORMATION
  Report Type: Spontaneous
  Country: JP (occurrence: JP)
  Receive Date: 20190812
  Receipt Date: 20190812
  Transmission Date: 20191004
  Serious: Yes (Other)
  Sender: FDA-Public Use
  Company Number: JP-PFIZER INC-2019343854

PATIENT
  Age: 66 Year
  Sex: Female
  Weight: 40.2 kg

DRUGS (12)
  1. CAMPTO [Suspect]
     Active Substance: IRINOTECAN
     Dosage: 150 MG/M2, 1X/DAY
     Route: 041
     Dates: start: 20190510, end: 20190621
  2. LEVOFOLINATE YAKULT [Suspect]
     Active Substance: LEVOLEUCOVORIN CALCIUM
     Indication: COLON CANCER
     Dosage: 200 MG/M2, 1X/DAY
     Route: 041
     Dates: start: 20181116, end: 20181228
  3. FLUOROURACIL. [Suspect]
     Active Substance: FLUOROURACIL
     Dosage: 1920 MG/M2, 1X/DAY
     Route: 041
     Dates: start: 20181116, end: 20181228
  4. FLUOROURACIL. [Suspect]
     Active Substance: FLUOROURACIL
     Dosage: UNK
     Route: 041
     Dates: start: 201805, end: 201809
  5. FLUOROURACIL. [Suspect]
     Active Substance: FLUOROURACIL
     Indication: COLON CANCER
     Dosage: 320 MG/M2, 1X/DAY
     Route: 040
     Dates: start: 20181116, end: 20181228
  6. LEVOFOLINATE YAKULT [Suspect]
     Active Substance: LEVOLEUCOVORIN CALCIUM
     Dosage: UNK, 1X/DAY
     Route: 041
     Dates: start: 201805, end: 201809
  7. ZALTRAP [Suspect]
     Active Substance: ZIV-AFLIBERCEPT
     Dosage: 3.2 MG/KG, 1X/DAY (6-10TH)
     Route: 041
     Dates: start: 20190222, end: 20190419
  8. CAMPTO [Suspect]
     Active Substance: IRINOTECAN
     Indication: COLON CANCER
     Dosage: 150 MG/M2, 1X/DAY
     Route: 041
     Dates: start: 20181116, end: 20190419
  9. ELPLAT [Suspect]
     Active Substance: OXALIPLATIN
     Indication: COLON CANCER
     Dosage: UNK, 1X/DAY
     Route: 041
     Dates: start: 201805, end: 201809
  10. ZALTRAP [Suspect]
     Active Substance: ZIV-AFLIBERCEPT
     Indication: COLON CANCER
     Dosage: 4 MG/KG, 1X/DAY
     Route: 041
     Dates: start: 20181116, end: 20181130
  11. ZALTRAP [Suspect]
     Active Substance: ZIV-AFLIBERCEPT
     Dosage: 4 MG/KG, 1X/DAY (3-5TH CYCLES)
     Route: 041
     Dates: start: 20181228, end: 20190125
  12. ZALTRAP [Suspect]
     Active Substance: ZIV-AFLIBERCEPT
     Dosage: 3.2 MG/KG, 1X/DAY (12TH AND 13TH CYCLES)
     Route: 041
     Dates: start: 20190607

REACTIONS (1)
  - Neuropathy peripheral [Not Recovered/Not Resolved]

NARRATIVE: CASE EVENT DATE: 20190111
